FAERS Safety Report 8346086 (Version 3)
Quarter: 2012Q4

REPORT INFORMATION
  Report Type: 
  Country: CA (occurrence: CA)
  Receive Date: 20120120
  Receipt Date: 20121224
  Transmission Date: 20130627
  Serious: Yes (Other)
  Sender: FDA-Public Use
  Company Number: PHHY2012CA002870

PATIENT
  Age: 65 Year
  Sex: Female

DRUGS (1)
  1. SANDOSTATIN LAR [Suspect]
     Indication: NEUROENDOCRINE CARCINOMA
     Dosage: 30 mg, every 4 weeks
     Route: 030
     Dates: start: 20120109

REACTIONS (6)
  - Diverticulitis [Unknown]
  - Pain [Unknown]
  - Blood pressure increased [Unknown]
  - Nasopharyngitis [Unknown]
  - Malaise [Unknown]
  - Injection site pain [Unknown]
